FAERS Safety Report 16971577 (Version 1)
Quarter: 2019Q4

REPORT INFORMATION
  Report Type: Spontaneous
  Country: AU (occurrence: AU)
  Receive Date: 20191029
  Receipt Date: 20191029
  Transmission Date: 20200122
  Serious: Yes (Other)
  Sender: FDA-Public Use
  Company Number: AU-JNJFOC-20191020960

PATIENT

DRUGS (1)
  1. IBRUTINIB [Suspect]
     Active Substance: IBRUTINIB
     Indication: MALIGNANT LYMPHOID NEOPLASM
     Route: 048

REACTIONS (4)
  - Product use in unapproved indication [Unknown]
  - Hypertension [Unknown]
  - Cardiovascular disorder [Unknown]
  - Off label use [Unknown]
